FAERS Safety Report 6199922 (Version 21)
Quarter: 2013Q3

REPORT INFORMATION
  Report Type: Spontaneous
  Country: US (occurrence: US)
  Receive Date: 20061221
  Receipt Date: 20130928
  Transmission Date: 20140515
  Serious: Yes (Other)
  Sender: FDA-Public Use
  Company Number: PHEH2006US15189

PATIENT
  Sex: Male
  Weight: 98.87 kg

DRUGS (8)
  1. ZOMETA [Suspect]
     Route: 042
  2. AREDIA [Suspect]
     Route: 042
  3. CHEMOTHERAPEUTICS NOS [Suspect]
  4. GLEEVEC [Concomitant]
  5. PRILOSEC [Concomitant]
  6. VIOXX [Concomitant]
  7. SEROQUEL [Concomitant]
  8. ZYPREXA [Concomitant]

REACTIONS (85)
  - Acute coronary syndrome [Unknown]
  - Cardiomegaly [Unknown]
  - Migraine [Unknown]
  - Chronic hepatitis C [Unknown]
  - Splenomegaly [Unknown]
  - Nephrolithiasis [Unknown]
  - Microcytosis [Unknown]
  - Neuritis [Unknown]
  - Fall [Unknown]
  - Depression [Unknown]
  - Extremity necrosis [Unknown]
  - Upper respiratory tract infection [Unknown]
  - Bone cancer [Unknown]
  - Wrist fracture [Unknown]
  - Impacted fracture [Unknown]
  - Arthritis [Unknown]
  - Neck pain [Unknown]
  - Back pain [Unknown]
  - Osteonecrosis of jaw [Unknown]
  - General physical health deterioration [Unknown]
  - Pain [Unknown]
  - Anxiety [Unknown]
  - Decreased interest [Unknown]
  - Bone disorder [Unknown]
  - Tooth disorder [Unknown]
  - Nausea [Unknown]
  - Diarrhoea [Unknown]
  - Vomiting [Unknown]
  - Dehydration [Unknown]
  - Muscle fatigue [Unknown]
  - Insomnia [Unknown]
  - Clavicle fracture [Unknown]
  - Flushing [Unknown]
  - Denture wearer [Unknown]
  - Dental caries [Unknown]
  - Localised infection [Unknown]
  - Myelodysplastic syndrome [Unknown]
  - Night sweats [Unknown]
  - Cholelithiasis [Unknown]
  - Haematuria [Unknown]
  - Gingival bleeding [Unknown]
  - Oral pain [Unknown]
  - Oral mucosal blistering [Unknown]
  - Craniocerebral injury [Unknown]
  - Rib fracture [Unknown]
  - Musculoskeletal pain [Unknown]
  - Musculoskeletal chest pain [Unknown]
  - Malignant mast cell neoplasm [Unknown]
  - Diverticulum intestinal [Unknown]
  - Arteriosclerosis [Unknown]
  - Vascular calcification [Unknown]
  - Prostatomegaly [Unknown]
  - Sweat gland tumour [Unknown]
  - Aortic arteriosclerosis [Unknown]
  - Left atrial dilatation [Unknown]
  - Left ventricular hypertrophy [Unknown]
  - Pulmonary valve incompetence [Unknown]
  - Tricuspid valve incompetence [Unknown]
  - Inguinal hernia [Unknown]
  - Diverticulitis [Unknown]
  - Osteosclerosis [Unknown]
  - Metastases to bone [Unknown]
  - Spondylolisthesis [Unknown]
  - Osteomyelitis [Unknown]
  - Gastrooesophageal reflux disease [Unknown]
  - Abdominal pain [Unknown]
  - Periodontitis [Unknown]
  - Spinal osteoarthritis [Unknown]
  - Mitral valve incompetence [Unknown]
  - Kidney infection [Unknown]
  - Large intestine polyp [Unknown]
  - Bone loss [Unknown]
  - Loose tooth [Unknown]
  - Presbyopia [Unknown]
  - Arthralgia [Unknown]
  - Dyspnoea [Unknown]
  - Sarcoma [Unknown]
  - Skin lesion [Unknown]
  - Bone swelling [Unknown]
  - Oral mucosal erythema [Unknown]
  - Testicular pain [Unknown]
  - Hepatic cirrhosis [Unknown]
  - Flank pain [Unknown]
  - Discomfort [Unknown]
  - Pain in jaw [Unknown]
